FAERS Safety Report 6531511-0 (Version None)
Quarter: 2009Q4

REPORT INFORMATION
  Report Type: 
  Country: None (occurrence: None)
  Receive Date: 20091222
  Receipt Date: 20091028
  Transmission Date: 20100525
  Serious: No
  Sender: FDA-Public Use
  Company Number: ALL1-2009-03410

PATIENT
  Age: 10 Year
  Sex: Female
  Weight: 44.9 kg

DRUGS (1)
  1. VYVANSE [Suspect]
     Indication: ATTENTION DEFICIT/HYPERACTIVITY DISORDER
     Dosage: 20 MG, 1X/DAY:QD, ORAL
     Route: 048
     Dates: start: 20090101, end: 20090101

REACTIONS (7)
  - AFFECT LABILITY [None]
  - AGITATION [None]
  - CONDITION AGGRAVATED [None]
  - DISTURBANCE IN ATTENTION [None]
  - HALLUCINATION [None]
  - NEGATIVISM [None]
  - PSYCHOTIC BEHAVIOUR [None]
